FAERS Safety Report 8259284-4 (Version None)
Quarter: 2012Q2

REPORT INFORMATION
  Report Type: 
  Country: None (occurrence: None)
  Receive Date: 20120404
  Receipt Date: 20120329
  Transmission Date: 20120825
  Serious: Yes (Life-Threatening, Hospitalization)
  Sender: FDA-Public Use
  Company Number: JP-PFIZER INC-2012083161

PATIENT
  Age: 72 Year
  Sex: Female
  Weight: 38 kg

DRUGS (10)
  1. ALDACTONE [Concomitant]
     Dosage: 25 MG, 1X/DAY
     Route: 048
     Dates: start: 20120209, end: 20120229
  2. WARFARIN [Concomitant]
     Dosage: 2 MG, UNK
     Route: 048
     Dates: start: 20120224, end: 20120327
  3. PROTECADIN [Concomitant]
     Dosage: 10 MG, 1X/DAY
     Route: 048
  4. CAPTOPRIL [Concomitant]
     Dosage: 18.75 DF, 2X/DAY
     Route: 048
     Dates: start: 20120131
  5. ZOSYN [Concomitant]
     Dosage: 4.5 G, 2X/DAY
     Route: 042
     Dates: start: 20120203, end: 20120216
  6. LASIX [Concomitant]
     Dosage: 20 MG, 1X/DAY
     Route: 048
  7. ARGATROBAN [Suspect]
     Indication: HEPARIN-INDUCED THROMBOCYTOPENIA
     Dosage: 0.5 MICROG/KG/MIN
     Route: 041
     Dates: start: 20120216, end: 20120217
  8. ASPIRIN [Concomitant]
     Dosage: 100 MG, UNK
     Route: 048
  9. ARGATROBAN [Suspect]
     Dosage: 0.25 MICROG/KG/MIN
     Route: 041
     Dates: start: 20120217, end: 20120229
  10. HEPARIN SODIUM [Concomitant]
     Dosage: UNK
     Route: 051
     Dates: start: 20120131

REACTIONS (2)
  - HAEMATOMA [None]
  - GASTRIC VARICES HAEMORRHAGE [None]
